FAERS Safety Report 6478414-8 (Version None)
Quarter: 2009Q4

REPORT INFORMATION
  Report Type: 
  Country: None (occurrence: None)
  Receive Date: 20091202
  Receipt Date: 20091118
  Transmission Date: 20100525
  Serious: Yes (Other)
  Sender: FDA-Public Use
  Company Number: ADR51432009

PATIENT
  Age: 40 Year
  Sex: Female

DRUGS (8)
  1. CITALOPRAM (MFR: UNKNOWN) [Suspect]
  2. CLOPIDOGREL [Concomitant]
  3. DICLOFENAC SODIUM [Concomitant]
  4. DIHYDROCODEINE BITARTRATE INJ [Concomitant]
  5. ENBREL [Concomitant]
  6. FOLIC ACID [Concomitant]
  7. HYDROXYCHLOROQUINE SULFATE [Concomitant]
  8. METHOTREXATE [Concomitant]

REACTIONS (1)
  - GALACTORRHOEA [None]
